FAERS Safety Report 6452868-5 (Version None)
Quarter: 2009Q4

REPORT INFORMATION
  Report Type: 
  Country: None (occurrence: None)
  Receive Date: 20091124
  Receipt Date: 20090407
  Transmission Date: 20100525
  Serious: No
  Sender: FDA-Public Use
  Company Number: US-ABBOTT-09P-163-0566893-00

PATIENT
  Sex: Male
  Weight: 99.88 kg

DRUGS (17)
  1. TRICOR [Suspect]
     Indication: BLOOD TRIGLYCERIDES INCREASED
     Route: 048
     Dates: start: 20081101, end: 20090101
  2. TRICOR [Suspect]
     Route: 048
     Dates: start: 20090101, end: 20090406
  3. TRICOR [Suspect]
     Route: 048
     Dates: start: 20090406
  4. SIMAVASTATIN [Concomitant]
     Indication: BLOOD CHOLESTEROL INCREASED
  5. ALLOPURINOL [Concomitant]
     Indication: GOUT
  6. DARVOCET [Concomitant]
     Indication: PAIN
  7. METOPROLOL [Concomitant]
     Indication: HYPERTENSION
  8. KLOR-CON [Concomitant]
     Indication: ELECTROLYTE SUBSTITUTION THERAPY
  9. FUROSEMIDE [Concomitant]
     Indication: CARDIAC FAILURE CONGESTIVE
  10. PLAVIX [Concomitant]
     Indication: CORONARY ARTERIAL STENT INSERTION
  11. ASPIRIN [Concomitant]
     Indication: CARDIOVASCULAR EVENT PROPHYLAXIS
  12. REMAPRIL [Concomitant]
     Indication: CARDIOVASCULAR EVENT PROPHYLAXIS
  13. DIGITALIS TAB [Concomitant]
     Indication: CARDIAC FAILURE CONGESTIVE
  14. FORTICAL [Concomitant]
     Indication: OSTEOPOROSIS
  15. OSCAL [Concomitant]
     Indication: OSTEOPOROSIS
  16. FISH OIL [Concomitant]
     Indication: CARDIOVASCULAR EVENT PROPHYLAXIS
  17. NITROGLYCERIN [Concomitant]
     Indication: CHEST PAIN

REACTIONS (4)
  - BLOOD TRIGLYCERIDES INCREASED [None]
  - HYPOAESTHESIA [None]
  - INSOMNIA [None]
  - MYALGIA [None]
